FAERS Safety Report 23527409 (Version 1)
Quarter: 2024Q1

REPORT INFORMATION
  Report Type: Spontaneous
  Country: JP (occurrence: JP)
  Receive Date: 20240215
  Receipt Date: 20240215
  Transmission Date: 20240410
  Serious: Yes (Other)
  Sender: FDA-Public Use
  Company Number: JP-MSD-M2024-05021

PATIENT
  Age: 60 Year
  Sex: Female

DRUGS (1)
  1. KEYTRUDA [Suspect]
     Active Substance: PEMBROLIZUMAB
     Indication: Bladder transitional cell carcinoma stage IV
     Dosage: 200 MILLIGRAM, Q3W
     Route: 041
     Dates: start: 2021, end: 2022

REACTIONS (4)
  - Hypothalamo-pituitary disorder [Recovered/Resolved]
  - Uveitis [Recovered/Resolved]
  - Cognitive disorder [Recovered/Resolved]
  - Liver disorder [Recovered/Resolved]
